FAERS Safety Report 10152395 (Version 3)
Quarter: 2014Q2

REPORT INFORMATION
  Report Type: Report from Study
  Country: DK (occurrence: DK)
  Receive Date: 20140505
  Receipt Date: 20140604
  Transmission Date: 20141212
  Serious: Yes (Hospitalization)
  Sender: FDA-Public Use
  Company Number: DK-JNJFOC-20140419460

PATIENT
  Age: 13 Year
  Sex: Female
  Weight: 35.2 kg

DRUGS (4)
  1. REMICADE [Suspect]
     Indication: CROHN^S DISEASE
     Route: 042
     Dates: start: 20111017
  2. HUMIRA [Concomitant]
     Indication: CROHN^S DISEASE
     Route: 065
     Dates: start: 20140127
  3. 5-ASA [Concomitant]
     Route: 048
  4. AZATHIOPRINE [Concomitant]
     Route: 065

REACTIONS (1)
  - Colitis ulcerative [Recovered/Resolved with Sequelae]
